FAERS Safety Report 4883835-0 (Version None)
Quarter: 2006Q1

REPORT INFORMATION
  Report Type: 
  Country: None (occurrence: None)
  Receive Date: 20060113
  Receipt Date: 20060105
  Transmission Date: 20060701
  Serious: Yes (Hospitalization)
  Sender: FDA-Public Use
  Company Number: 2006-01-0377

PATIENT
  Age: 41 Year
  Sex: Male

DRUGS (6)
  1. PROVENTIL [Suspect]
     Indication: ASTHMA
     Dosage: INHALATION/ 3 DOSE (S)
     Route: 055
  2. ALBUTEROL SULFATE [Suspect]
     Indication: ASTHMA
     Dosage: INHALATION/3 DOSE(S
     Route: 055
  3. TOPROL-XL [Concomitant]
  4. COZAAR [Concomitant]
  5. ASPIRIN BABY [Concomitant]
  6. ZANTAC [Concomitant]

REACTIONS (4)
  - ASTHMA [None]
  - CONDITION AGGRAVATED [None]
  - DRUG INEFFECTIVE [None]
  - REACTION TO PRESERVATIVES [None]
